FAERS Safety Report 19676722 (Version 2)
Quarter: 2021Q3

REPORT INFORMATION
  Report Type: Spontaneous
  Country: US (occurrence: US)
  Receive Date: 20210809
  Receipt Date: 20210823
  Transmission Date: 20211014
  Serious: Yes (Other)
  Sender: FDA-Public Use
  Company Number: US-ORGANON-O2108USA000360

PATIENT
  Age: 1 Day

DRUGS (1)
  1. NEXPLANON [Suspect]
     Active Substance: ETONOGESTREL
     Dosage: 1 IMPLANT, RIGHT UPPER ARM OF MOTHER
     Route: 064
     Dates: start: 201903

REACTIONS (4)
  - Neonatal respiratory distress [Unknown]
  - Hyperbilirubinaemia neonatal [Unknown]
  - Foetal exposure during pregnancy [Recovered/Resolved]
  - Sepsis neonatal [Unknown]

NARRATIVE: CASE EVENT DATE: 20210606
